FAERS Safety Report 20791032 (Version 1)
Quarter: 2022Q2

REPORT INFORMATION
  Report Type: Spontaneous
  Country: None (occurrence: SE)
  Receive Date: 20220505
  Receipt Date: 20220505
  Transmission Date: 20220721
  Serious: Yes (Disabling)
  Sender: FDA-Public Use
  Company Number: SE-ALSI-2021000440

PATIENT
  Age: 35 Year
  Sex: Male

DRUGS (1)
  1. OXYGEN [Suspect]
     Active Substance: OXYGEN
     Indication: Accidental exposure to product
     Dates: start: 20211219, end: 20211219

REACTIONS (1)
  - Thermal burn [Recovering/Resolving]
